FAERS Safety Report 8559199-8 (Version None)
Quarter: 2012Q3

REPORT INFORMATION
  Report Type: 
  Country: None (occurrence: None)
  Receive Date: 20120802
  Receipt Date: 20120729
  Transmission Date: 20120928
  Serious: Yes (Other)
  Sender: FDA-Public Use
  Company Number: MX-MSD-1208MEX000231

PATIENT

DRUGS (4)
  1. KALETRA [Suspect]
     Dosage: UNK DF, UNK
     Route: 048
     Dates: start: 20120528
  2. VIREAD [Suspect]
     Dosage: UNK MG, UNK
     Route: 048
     Dates: start: 20120328, end: 20120523
  3. COMBIVIR [Suspect]
     Dosage: UNK DF, UNK
     Route: 048
     Dates: start: 20120528
  4. ISENTRESS [Suspect]
     Dosage: UNK MG, UNK
     Route: 048
     Dates: start: 20120328, end: 20120523

REACTIONS (2)
  - MATERNAL EXPOSURE DURING PREGNANCY [None]
  - ABORTION SPONTANEOUS [None]
